FAERS Safety Report 8616916-6 (Version None)
Quarter: 2012Q3

REPORT INFORMATION
  Report Type: 
  Country: None (occurrence: None)
  Receive Date: 20120823
  Receipt Date: 20120813
  Transmission Date: 20120928
  Serious: No
  Sender: FDA-Public Use
  Company Number: US-009507513-1208USA006251

PATIENT

DRUGS (2)
  1. LANTUS [Suspect]
     Dosage: 40 IU, QAM
     Route: 058
  2. JANUVIA [Suspect]
     Dosage: 100 MG, QAM
     Route: 058

REACTIONS (2)
  - INJECTION SITE PAIN [None]
  - BLOOD GLUCOSE INCREASED [None]
